FAERS Safety Report 8029053-9 (Version None)
Quarter: 2012Q1

REPORT INFORMATION
  Report Type: 
  Country: None (occurrence: None)
  Receive Date: 20120106
  Receipt Date: 20111228
  Transmission Date: 20120608
  Serious: Yes (Hospitalization, Other)
  Sender: FDA-Public Use
  Company Number: US-ASTRAZENECA-2011SE51962

PATIENT
  Age: 803 Month
  Sex: Female

DRUGS (1)
  1. SYMBICORT [Suspect]
     Dosage: HIGHER STRENGTH, UNKNOWN
     Route: 055
     Dates: end: 20111201

REACTIONS (3)
  - BLOOD PRESSURE INCREASED [None]
  - DYSPNOEA [None]
  - BRONCHOSPASM [None]
